FAERS Safety Report 21268160 (Version 1)
Quarter: 2022Q3

REPORT INFORMATION
  Report Type: Spontaneous
  Country: GR (occurrence: GR)
  Receive Date: 20220830
  Receipt Date: 20220830
  Transmission Date: 20221026
  Serious: Yes (Death)
  Sender: FDA-Public Use
  Company Number: None

PATIENT
  Age: 77 Year
  Sex: Male
  Weight: 62 kg

DRUGS (3)
  1. DARZALEX [Suspect]
     Active Substance: DARATUMUMAB
     Indication: Plasma cell myeloma
     Dosage: 1 ADMINISTRATION ONCE A WEEK
     Route: 058
     Dates: start: 20220606, end: 20220621
  2. POMALIDOMIDE [Suspect]
     Active Substance: POMALIDOMIDE
     Indication: Plasma cell myeloma
     Route: 048
     Dates: start: 20220606, end: 20220621
  3. DEXAMETHASONE [Concomitant]
     Active Substance: DEXAMETHASONE
     Indication: Plasma cell myeloma
     Dosage: 10 MG ONCE A WEEK
     Route: 058
     Dates: start: 20220606, end: 20220621

REACTIONS (5)
  - Respiratory tract infection [Fatal]
  - Cardio-respiratory arrest [Fatal]
  - Septic shock [Fatal]
  - Neutropenia [Fatal]
  - Death [Fatal]

NARRATIVE: CASE EVENT DATE: 20220621
